FAERS Safety Report 23955920 (Version 3)
Quarter: 2024Q4

REPORT INFORMATION
  Report Type: Spontaneous
  Country: CA (occurrence: CA)
  Receive Date: 20240610
  Receipt Date: 20241030
  Transmission Date: 20250115
  Serious: Yes (Death)
  Sender: ROCHE
  Company Number: CA-ROCHE-3577123

PATIENT
  Age: 4 Month
  Sex: Female

DRUGS (20)
  1. MYCOPHENOLATE MOFETIL [Suspect]
     Active Substance: MYCOPHENOLATE MOFETIL
     Indication: Immunosuppressant drug therapy
     Route: 065
  2. MYCOPHENOLATE MOFETIL [Suspect]
     Active Substance: MYCOPHENOLATE MOFETIL
     Indication: Prophylaxis against transplant rejection
  3. MYCOPHENOLATE MOFETIL [Suspect]
     Active Substance: MYCOPHENOLATE MOFETIL
     Indication: Immunosuppression
  4. GANCICLOVIR [Suspect]
     Active Substance: GANCICLOVIR
     Indication: Pneumonia cytomegaloviral
     Route: 048
  5. ACYCLOVIR [Suspect]
     Active Substance: ACYCLOVIR
     Indication: Antiviral prophylaxis
     Route: 065
  6. THYMOCYTE IMMUNE GLOBULIN NOS [Suspect]
     Active Substance: THYMOCYTE IMMUNE GLOBULIN NOS
     Indication: Immunosuppressant drug therapy
     Route: 065
  7. THYMOCYTE IMMUNE GLOBULIN NOS [Suspect]
     Active Substance: THYMOCYTE IMMUNE GLOBULIN NOS
     Indication: Prophylaxis against transplant rejection
  8. THYMOCYTE IMMUNE GLOBULIN NOS [Suspect]
     Active Substance: THYMOCYTE IMMUNE GLOBULIN NOS
     Indication: Immunosuppression
  9. CYCLOSPORINE [Suspect]
     Active Substance: CYCLOSPORINE
     Indication: Immunosuppressant drug therapy
     Route: 065
  10. PREDNISONE [Suspect]
     Active Substance: PREDNISONE
     Indication: Immunosuppressant drug therapy
     Route: 065
  11. PREDNISONE [Suspect]
     Active Substance: PREDNISONE
     Indication: Prophylaxis against transplant rejection
  12. PREDNISONE [Suspect]
     Active Substance: PREDNISONE
     Indication: Immunosuppression
  13. TACROLIMUS [Suspect]
     Active Substance: TACROLIMUS
     Indication: Immunosuppressant drug therapy
     Route: 065
  14. TACROLIMUS [Suspect]
     Active Substance: TACROLIMUS
     Indication: Immunosuppression
  15. TACROLIMUS [Suspect]
     Active Substance: TACROLIMUS
     Indication: Prophylaxis against transplant rejection
  16. SIROLIMUS [Suspect]
     Active Substance: SIROLIMUS
     Indication: Immunosuppression
     Route: 065
  17. GANCICLOVIR [Suspect]
     Active Substance: GANCICLOVIR
     Indication: Pneumonia cytomegaloviral
     Route: 048
  18. VALGANCICLOVIR [Suspect]
     Active Substance: VALGANCICLOVIR
     Indication: Antiviral prophylaxis
     Route: 065
  19. VALGANCICLOVIR [Concomitant]
     Active Substance: VALGANCICLOVIR
     Indication: Antiviral prophylaxis
     Route: 065
  20. GANCICLOVIR [Concomitant]
     Active Substance: GANCICLOVIR
     Indication: Antiviral prophylaxis
     Route: 042

REACTIONS (14)
  - Adrenal mass [Fatal]
  - Epstein-Barr virus associated lymphoproliferative disorder [Fatal]
  - Epstein-Barr virus infection [Fatal]
  - Gastric ulcer [Fatal]
  - Gastrointestinal stromal tumour [Fatal]
  - Smooth muscle cell neoplasm [Fatal]
  - Drug ineffective [Fatal]
  - Haemorrhage intracranial [Fatal]
  - Lymphadenopathy [Fatal]
  - Multiple organ dysfunction syndrome [Fatal]
  - Post transplant lymphoproliferative disorder [Fatal]
  - Splenomegaly [Fatal]
  - Infected neoplasm [Fatal]
  - Intussusception [Fatal]
